FAERS Safety Report 13500366 (Version 1)
Quarter: 2017Q2

REPORT INFORMATION
  Report Type: Spontaneous
  Country: JP (occurrence: JP)
  Receive Date: 20170501
  Receipt Date: 20170501
  Transmission Date: 20170830
  Serious: Yes (Death, Hospitalization, Other)
  Sender: FDA-Public Use
  Company Number: JP-PFIZER INC-2017184245

PATIENT
  Age: 54 Year
  Sex: Male
  Weight: 62.3 kg

DRUGS (11)
  1. METHOTREXATE. [Interacting]
     Active Substance: METHOTREXATE
     Dosage: 15 MG, DAILY
     Route: 024
  2. E KEPPRA [Interacting]
     Active Substance: LEVETIRACETAM
     Indication: EPILEPSY
     Dosage: 500 MG, 2X/DAY
     Route: 048
     Dates: start: 20130701, end: 20130714
  3. BAKTAR [Concomitant]
     Active Substance: SULFAMETHOXAZOLE\TRIMETHOPRIM
  4. VFEND [Concomitant]
     Active Substance: VORICONAZOLE
  5. METHOTREXATE. [Suspect]
     Active Substance: METHOTREXATE
     Indication: ACUTE MYELOMONOCYTIC LEUKAEMIA
     Dosage: 15 MG, DAILY
     Route: 024
     Dates: start: 20130630, end: 20130630
  6. METHOTREXATE. [Interacting]
     Active Substance: METHOTREXATE
     Dosage: 15 MG, DAILY
     Route: 024
  7. NEXIUM [Concomitant]
     Active Substance: ESOMEPRAZOLE MAGNESIUM
  8. GLYCEOL [Concomitant]
     Active Substance: GLYCERIN
  9. PREDONINE [Concomitant]
     Active Substance: PREDNISOLONE
     Dosage: 10 MG, UNK
  10. URSO [Concomitant]
     Active Substance: URSODIOL
  11. CYLOCIDE [Concomitant]
     Active Substance: CYTARABINE
     Dosage: 40 MG, UNK

REACTIONS (5)
  - Acute myelomonocytic leukaemia [Fatal]
  - Drug interaction [Unknown]
  - Oral disorder [Not Recovered/Not Resolved]
  - Disease progression [Fatal]
  - Sepsis [Not Recovered/Not Resolved]

NARRATIVE: CASE EVENT DATE: 2013
